FAERS Safety Report 8345725-0 (Version None)
Quarter: 2012Q2

REPORT INFORMATION
  Report Type: 
  Country: None (occurrence: None)
  Receive Date: 20120508
  Receipt Date: 20120424
  Transmission Date: 20120825
  Serious: Yes (Other)
  Sender: FDA-Public Use
  Company Number: CA-ELI_LILLY_AND_COMPANY-CA201203004699

PATIENT
  Sex: Female
  Weight: 53.2 kg

DRUGS (5)
  1. TEGRETOL [Concomitant]
     Dosage: 100 UG, QD
  2. CALTRATE                           /00751519/ [Concomitant]
  3. VITAMIN D [Concomitant]
  4. FORTEO [Suspect]
     Indication: OSTEOPOROSIS
     Dosage: 20 UG, QD
     Route: 058
     Dates: start: 20110720
  5. FORTEO [Suspect]
     Dosage: 20 UG, QD
     Route: 058

REACTIONS (4)
  - ANAEMIA [None]
  - HIP FRACTURE [None]
  - FALL [None]
  - UPPER LIMB FRACTURE [None]
